FAERS Safety Report 8862437 (Version 2)
Quarter: 2012Q4

REPORT INFORMATION
  Report Type: 
  Country: GB (occurrence: GB)
  Receive Date: 20121026
  Receipt Date: 20121108
  Transmission Date: 20130627
  Serious: Yes (Hospitalization, Other)
  Sender: FDA-Public Use
  Company Number: GB-RANBAXY-2012RR-61471

PATIENT
  Age: 43 Year
  Sex: Female

DRUGS (5)
  1. CITALOPRAM [Suspect]
     Indication: PRODUCT USED FOR UNKNOWN INDICATION
     Dosage: 560 mg
     Route: 048
  2. DIAZEPAM [Suspect]
     Indication: PRODUCT USED FOR UNKNOWN INDICATION
     Dosage: 115 mg
     Route: 048
  3. DILTIAZEM [Suspect]
     Indication: PRODUCT USED FOR UNKNOWN INDICATION
     Dosage: 3360 mg
     Route: 048
  4. GABAPENTIN [Suspect]
     Indication: PRODUCT USED FOR UNKNOWN INDICATION
     Dosage: 1800 mg
     Route: 048
  5. IRBESARTAN [Suspect]
     Indication: PRODUCT USED FOR UNKNOWN INDICATION
     Dosage: 1800 mg
     Route: 048

REACTIONS (7)
  - Atrioventricular block complete [Recovered/Resolved]
  - Pulmonary oedema [Recovered/Resolved]
  - Hypoxia [Unknown]
  - Hypotension [Recovering/Resolving]
  - Renal impairment [Recovering/Resolving]
  - Left ventricular dysfunction [Not Recovered/Not Resolved]
  - Intentional overdose [Recovered/Resolved]
